FAERS Safety Report 8306257-9 (Version None)
Quarter: 2012Q2

REPORT INFORMATION
  Report Type: 
  Country: None (occurrence: None)
  Receive Date: 20120423
  Receipt Date: 20120417
  Transmission Date: 20120825
  Serious: No
  Sender: FDA-Public Use
  Company Number: US-PFIZER INC-2012095358

PATIENT
  Sex: Female
  Weight: 56.689 kg

DRUGS (6)
  1. METOPROLOL [Concomitant]
     Dosage: UNK
  2. ENALAPRIL [Concomitant]
     Indication: HYPERTENSION
     Dosage: UNK
  3. TOVIAZ [Suspect]
     Indication: HYPERTONIC BLADDER
     Dosage: 4 MG, 1X/DAY
     Route: 048
     Dates: start: 20120308
  4. TOVIAZ [Suspect]
     Dosage: 8 MG, 1X/DAY
     Route: 048
     Dates: start: 20120401, end: 20120401
  5. LOVASTATIN [Concomitant]
     Indication: ATRIOVENTRICULAR BLOCK
     Dosage: UNK
  6. TOVIAZ [Suspect]
     Dosage: 8 MG, 1X/DAY
     Route: 048
     Dates: start: 20120401

REACTIONS (2)
  - DRUG INEFFECTIVE [None]
  - DRY MOUTH [None]
